FAERS Safety Report 5356666-5 (Version None)
Quarter: 2007Q2

REPORT INFORMATION
  Report Type: 
  Country: None (occurrence: None)
  Receive Date: 20070611
  Receipt Date: 20070530
  Transmission Date: 20071010
  Serious: Yes (Hospitalization, Other)
  Sender: FDA-Public Use
  Company Number: 236236K06USA

PATIENT
  Age: 40 Year
  Sex: Female

DRUGS (1)
  1. REBIF [Suspect]
     Indication: MULTIPLE SCLEROSIS
     Dosage: 44 MCG, 3 IN 1 WEEKS, SUBCUTANEOUS
     Route: 058
     Dates: start: 20040319, end: 20060801

REACTIONS (9)
  - ABDOMINAL HAEMATOMA [None]
  - FEELING HOT AND COLD [None]
  - GASTRIC NEOPLASM [None]
  - OVARIAN HAEMORRHAGE [None]
  - OVARIAN NEOPLASM [None]
  - PYREXIA [None]
  - RENAL NEOPLASM [None]
  - TUMOUR HAEMORRHAGE [None]
  - TUMOUR INVASION [None]
